FAERS Safety Report 8550366-6 (Version None)
Quarter: 2012Q3

REPORT INFORMATION
  Report Type: 
  Country: None (occurrence: None)
  Receive Date: 20120730
  Receipt Date: 20120720
  Transmission Date: 20120928
  Serious: Yes (Hospitalization)
  Sender: FDA-Public Use
  Company Number: US-INCYTE CORPORATION-2012IN000202

PATIENT
  Sex: Female
  Weight: 67.574 kg

DRUGS (8)
  1. SYNTHROID [Concomitant]
     Dosage: 100 MCG, QD
  2. PREMARIN [Concomitant]
  3. JAKAFI [Suspect]
     Indication: MYELOFIBROSIS
     Dosage: 20 MG, BID
     Route: 048
     Dates: start: 20111208, end: 20120124
  4. LASIX [Concomitant]
     Dosage: 20 MG, QD
  5. CADUET [Concomitant]
     Dosage: UNK, QD
  6. CHROMACAPS [Concomitant]
  7. CELEXA [Concomitant]
     Dosage: 20 MG, QD
  8. TOPROL-XL [Concomitant]

REACTIONS (3)
  - ANAEMIA [None]
  - DYSPNOEA [None]
  - THROMBOCYTOPENIA [None]
